FAERS Safety Report 8126144-9 (Version None)
Quarter: 2012Q1

REPORT INFORMATION
  Report Type: 
  Country: None (occurrence: None)
  Receive Date: 20120209
  Receipt Date: 20120203
  Transmission Date: 20120608
  Serious: Yes (Life-Threatening, Hospitalization, Other)
  Sender: FDA-Public Use
  Company Number: PHHY2011US67807

PATIENT
  Sex: Female
  Weight: 53.061 kg

DRUGS (12)
  1. PREDNISONE [Concomitant]
     Dosage: 60 MG, DAILY X 1 WEEK
  2. NORCO [Concomitant]
     Dosage: 10/325 AS NEEDED
  3. PREDNISONE [Concomitant]
     Dosage: 40 MG, DAILY
     Route: 048
  4. MS CONTIN [Concomitant]
     Dosage: 90 MG, 1 IN MOR 2 INNIGHT
  5. PERCOCET [Concomitant]
     Dosage: 10 MG, UNK
     Route: 048
  6. EXJADE [Suspect]
     Indication: IRON OVERLOAD
     Dosage: 1250 MG, QD
     Route: 048
     Dates: start: 20100201
  7. HYDREA [Concomitant]
     Dosage: 500 MG, DAILY
     Route: 048
  8. MS CONTIN [Concomitant]
     Dosage: 30 MG, BID
     Route: 048
  9. FOLIC ACID [Concomitant]
     Dosage: 1 MG, DAILY
     Route: 048
  10. EXJADE [Suspect]
     Indication: SICKLE CELL ANAEMIA WITH CRISIS
  11. PERCOCET [Concomitant]
     Dosage: 325 MG, UNK
     Route: 048
  12. MACROBID [Concomitant]
     Dosage: 100 MG, BID
     Route: 048

REACTIONS (14)
  - BLOOD BILIRUBIN DECREASED [None]
  - SERUM FERRITIN INCREASED [None]
  - BLOOD PRESSURE DECREASED [None]
  - SICKLE CELL ANAEMIA WITH CRISIS [None]
  - JAUNDICE [None]
  - COUGH [None]
  - PYREXIA [None]
  - HAEMOGLOBIN DECREASED [None]
  - BACK PAIN [None]
  - ESCHERICHIA INFECTION [None]
  - TACHYCARDIA [None]
  - HEART RATE INCREASED [None]
  - PAIN IN EXTREMITY [None]
  - ANAEMIA [None]
